FAERS Safety Report 9687158 (Version 1)
Quarter: 2013Q4

REPORT INFORMATION
  Report Type: Report from Study
  Country: US (occurrence: US)
  Receive Date: 20131113
  Receipt Date: 20131113
  Transmission Date: 20140711
  Serious: Yes (Death)
  Sender: FDA-Public Use
  Company Number: US-ROCHE-1303352

PATIENT
  Sex: Female
  Weight: 108.05 kg

DRUGS (10)
  1. AVASTIN [Suspect]
     Indication: BREAST CANCER FEMALE
     Dosage: DAILY SHROT OVER 90 MINUTES IN NORMAL SALINE (28/JAN/2010, 18/FEB/2010
     Route: 042
     Dates: start: 20100107, end: 20100128
  2. AVASTIN [Suspect]
     Indication: METASTASES TO LUNG
  3. PALONOSETRON HYDROCHLORIDE [Concomitant]
     Dosage: WITH NORMAL SALINE (28/JAN/2010, 18/FEB/2010
     Route: 041
     Dates: start: 20100107, end: 20100128
  4. DEXAMETHASONE SODIUM PHOSPHATE [Concomitant]
     Dosage: WITH NORMAL SALINE (28/JAN/2010,18/FEB/2010
     Route: 041
     Dates: start: 20100107, end: 20100107
  5. DIPHENHYDRAMINE HCL [Concomitant]
     Dosage: WITH NORMAL SALINE (28/JAN/2010,18/FEB/2010
     Route: 041
     Dates: start: 20100107
  6. CIMETIDINE HCL [Concomitant]
     Route: 030
     Dates: start: 20100107, end: 20100107
  7. LUPRON [Concomitant]
     Route: 065
  8. NORMAL SALINE [Concomitant]
     Route: 042
     Dates: start: 20100107, end: 20100107
  9. FAMOTIDINE [Concomitant]
     Dosage: DAILY SHORT OVER 15 MINUTES WITH NORMAL SALINE (18/FEB/2010,
     Route: 042
     Dates: start: 20100128
  10. ZOMETA [Concomitant]
     Dosage: DAILY SHORT OVER 30 MINUTES IN NORMAL SALINE
     Route: 042
     Dates: start: 20100128, end: 20100128

REACTIONS (6)
  - Death [Fatal]
  - Breast swelling [Unknown]
  - Breast induration [Unknown]
  - Fatigue [Unknown]
  - Crying [Unknown]
  - Pain [Unknown]
